FAERS Safety Report 13190965 (Version 1)
Quarter: 2017Q1

REPORT INFORMATION
  Report Type: Spontaneous
  Country: NL (occurrence: NL)
  Receive Date: 20170206
  Receipt Date: 20170206
  Transmission Date: 20170428
  Serious: Yes (Life-Threatening, Hospitalization)
  Sender: FDA-Public Use
  Company Number: NL-ASTRAZENECA-2017SE11684

PATIENT
  Age: 671 Month
  Sex: Male

DRUGS (1)
  1. SYMBICORT [Suspect]
     Active Substance: BUDESONIDE\FORMOTEROL FUMARATE DIHYDRATE
     Dosage: 400/12
     Route: 055

REACTIONS (5)
  - Respiratory failure [Unknown]
  - Drug dose omission [Unknown]
  - Status asthmaticus [Unknown]
  - Influenza [Unknown]
  - Device malfunction [Unknown]

NARRATIVE: CASE EVENT DATE: 201611
